FAERS Safety Report 10544295 (Version 1)
Quarter: 2014Q4

REPORT INFORMATION
  Report Type: Report from Study
  Country: CA (occurrence: CA)
  Receive Date: 20141027
  Receipt Date: 20141027
  Transmission Date: 20150529
  Serious: Yes (Death)
  Sender: FDA-Public Use
  Company Number: CA-AMGEN-CANSL2014081688

PATIENT
  Age: 75 Year
  Sex: Male

DRUGS (13)
  1. IRON [Concomitant]
     Active Substance: IRON
  2. VITAMIN D                          /00107901/ [Concomitant]
     Active Substance: ERGOCALCIFEROL
  3. PREDNISONE. [Concomitant]
     Active Substance: PREDNISONE
  4. ATIVAN [Concomitant]
     Active Substance: LORAZEPAM
  5. LIPITOR [Concomitant]
     Active Substance: ATORVASTATIN CALCIUM
  6. LASIX [Concomitant]
     Active Substance: FUROSEMIDE
  7. PROLIA [Suspect]
     Active Substance: DENOSUMAB
     Indication: OSTEOPOROSIS
     Dosage: 60 MG/ML, UNK
     Route: 065
     Dates: start: 20110704
  8. CYCLOSPORIN [Concomitant]
     Active Substance: CYCLOSPORINE
  9. BISOPROLOL [Concomitant]
     Active Substance: BISOPROLOL
  10. TECTA [Concomitant]
     Active Substance: PANTOPRAZOLE MAGNESIUM
  11. CELEXA [Concomitant]
     Active Substance: CITALOPRAM HYDROBROMIDE
  12. EPREX [Concomitant]
     Active Substance: ERYTHROPOIETIN
  13. AZITHROMYCIN [Concomitant]
     Active Substance: AZITHROMYCIN ANHYDROUS

REACTIONS (1)
  - Death [Fatal]

NARRATIVE: CASE EVENT DATE: 20140730
